FAERS Safety Report 24417814 (Version 1)
Quarter: 2024Q4

REPORT INFORMATION
  Report Type: Spontaneous
  Country: CA (occurrence: CA)
  Receive Date: 20241009
  Receipt Date: 20241009
  Transmission Date: 20250115
  Serious: Yes (Death, Life-Threatening, Hospitalization, Disabling, Congenital Anomaly, Other)
  Sender: BAXTER
  Company Number: CA-BAXTER-2024BAX025478

PATIENT
  Age: 40 Year
  Sex: Female

DRUGS (372)
  1. ACETAMINOPHEN [Suspect]
     Active Substance: ACETAMINOPHEN
     Indication: Rheumatoid arthritis
     Dosage: (DOSAGE FORM: NOT SPECIFIED) UNSPECIFIED DOSE AND FREQUENCY
     Route: 065
  2. ACETAMINOPHEN [Suspect]
     Active Substance: ACETAMINOPHEN
     Indication: Rheumatoid arthritis
     Dosage: UNSPECIFIED DOSE AND FREQUENCY
     Route: 065
  3. ACETAMINOPHEN [Suspect]
     Active Substance: ACETAMINOPHEN
     Dosage: 20.0 MG AT AN UNSPECIFIED FREQUENCY
     Route: 065
  4. ACTEMRA [Suspect]
     Active Substance: TOCILIZUMAB
     Indication: Rheumatoid arthritis
     Dosage: (DOSAGE FORM: SOLUTION FOR INJECTION IN PRE-FILLED SYRINGE) 728.0 MG AT AN UNSPECIFIED FREQUENCY
     Route: 058
  5. ACTEMRA [Suspect]
     Active Substance: TOCILIZUMAB
     Dosage: (DOSAGE FORM: NOT SPECIFIED) 752.8 MG AT AN UNSPECIFIED FREQUENCY
     Route: 058
  6. ACTEMRA [Suspect]
     Active Substance: TOCILIZUMAB
     Dosage: (DOSAGE FORM: SOLUTION FOR INJECTION IN PRE-FILLED SYRINGE) 8.0 MG AT AN UNSPECIFIED FREQUENCY
     Route: 042
  7. ACTEMRA [Suspect]
     Active Substance: TOCILIZUMAB
     Dosage: (DOSAGE FORM: SOLUTION FOR INJECTION IN PRE-FILLED SYRINGE) 3011.2 MG AT AN UNSPECIFIED FREQUENCY
     Route: 042
  8. ACTEMRA [Suspect]
     Active Substance: TOCILIZUMAB
     Dosage: (DOSAGE FORM: SOLUTION FOR INJECTION IN PRE-FILLED SYRINGE) 752.8 MG AT AN UNSPECIFIED FREQUENCY
     Route: 042
  9. ACTEMRA [Suspect]
     Active Substance: TOCILIZUMAB
     Dosage: (DOSAGE FORM: SOLUTION FOR INJECTION IN PRE-FILLED SYRINGE) UNSPECIFIED DOSE AND FREQUENCY
     Route: 016
  10. ACTEMRA [Suspect]
     Active Substance: TOCILIZUMAB
     Dosage: (DOSAGE FORM: SOLUTION FOR INJECTION IN PRE-FILLED SYRINGE) 2912.0 MG AT AN UNSPECIFIED FREQUENCY
     Route: 042
  11. ACTEMRA [Suspect]
     Active Substance: TOCILIZUMAB
     Dosage: (DOSAGE FORM: SOLUTION FOR INJECTION IN PRE-FILLED SYRINGE) 25.0 MG, 1 EVERY 1 WEEKS
     Route: 058
  12. ACTEMRA [Suspect]
     Active Substance: TOCILIZUMAB
     Dosage: (DOSAGE FORM: SOLUTION FOR INJECTION IN PRE-FILLED SYRINGE) UNSPECIFIED DOSE AND FREQUENCY
     Route: 058
  13. ACTEMRA [Suspect]
     Active Substance: TOCILIZUMAB
     Dosage: (DOSAGE FORM: SOLUTION FOR INJECTION IN PRE-FILLED SYRINGE) 20.0 MG AT AN UNSPECIFIED FREQUENCY
     Route: 065
  14. ACTEMRA [Suspect]
     Active Substance: TOCILIZUMAB
     Dosage: (DOSAGE FORM: SOLUTION FOR INJECTION IN PRE-FILLED SYRINGE) 752.8 MG AT AN UNSPECIFIED FREQUENCY
     Route: 058
  15. ACTEMRA [Suspect]
     Active Substance: TOCILIZUMAB
     Dosage: (DOSAGE FORM: SOLUTION FOR INJECTION IN PRE-FILLED SYRINGE) 2912.0 MG AT AN UNSPECIFIED FREQUENCY
     Route: 058
  16. ACTEMRA [Suspect]
     Active Substance: TOCILIZUMAB
     Dosage: (DOSAGE FORM: SOLUTION FOR INJECTION IN PRE-FILLED SYRINGE) 8.0 MG/KG AT AN UNSPECIFIED FREQUENCY
     Route: 042
  17. ACTEMRA [Suspect]
     Active Substance: TOCILIZUMAB
     Dosage: (DOSAGE FORM: SOLUTION FOR INJECTION IN PRE-FILLED SYRINGE) 162.0 MG AT AN UNSPECIFIED FREQUENCY
     Route: 058
  18. ACTEMRA [Suspect]
     Active Substance: TOCILIZUMAB
     Dosage: (DOSAGE FORM: SOLUTION FOR INJECTION IN PRE-FILLED SYRINGE) UNSPECIFIED DOSE AND FREQUENCY
     Route: 065
  19. ACTEMRA [Suspect]
     Active Substance: TOCILIZUMAB
     Dosage: (DOSAGE FORM: SOLUTION FOR INJECTION IN PRE-FILLED SYRINGE) UNSPECIFIED DOSE AND FREQUENCY
     Route: 061
  20. ACTEMRA [Suspect]
     Active Substance: TOCILIZUMAB
     Dosage: (DOSAGE FORM: SOLUTION FOR INJECTION IN PRE-FILLED SYRINGE) 8.0 MG/KG AT AN UNSPECIFIED FREQUENCY
     Route: 058
  21. ACTEMRA [Suspect]
     Active Substance: TOCILIZUMAB
     Dosage: (DOSAGE FORM: SOLUTION FOR INJECTION IN PRE-FILLED SYRINGE) 728.0 MG AT AN UNSPECIFIED FREQUENCY
     Route: 042
  22. ADALIMUMAB [Suspect]
     Active Substance: ADALIMUMAB
     Indication: Rheumatoid arthritis
     Dosage: UNSPECIFIED DOSE AND FREQUENCY
     Route: 058
  23. ADALIMUMAB [Suspect]
     Active Substance: ADALIMUMAB
     Dosage: 40.0 MG AT AN UNSPECIFIED FREQUENCY
     Route: 058
  24. ADALIMUMAB [Suspect]
     Active Substance: ADALIMUMAB
     Dosage: (DOSAGE FORM: SOLUTION SUBCUTANEOUS) 40.0 MG AT AN UNSPECIFIED FREQUENCY
     Route: 058
  25. ALENDRONIC ACID [Suspect]
     Active Substance: ALENDRONIC ACID
     Indication: Rheumatoid arthritis
     Dosage: UNSPECIFIED DOSE AND FREQUENCY
     Route: 065
  26. ALENDRONIC ACID [Suspect]
     Active Substance: ALENDRONIC ACID
     Dosage: UNSPECIFIED DOSE AND FREQUENCY
     Route: 016
  27. ALENDRONIC ACID [Suspect]
     Active Substance: ALENDRONIC ACID
     Dosage: UNSPECIFIED DOSE AND FREQUENCY
     Route: 065
  28. ALENDRONIC ACID [Suspect]
     Active Substance: ALENDRONIC ACID
     Dosage: UNSPECIFIED DOSE AND FREQUENCY
     Route: 048
  29. ALENDRONIC ACID [Suspect]
     Active Substance: ALENDRONIC ACID
     Dosage: UNSPECIFIED DOSE AND FREQUENCY
     Route: 065
  30. LEFLUNOMIDE [Suspect]
     Active Substance: LEFLUNOMIDE
     Indication: Rheumatoid arthritis
     Dosage: 10.0 MG AT AN UNSPECIFIED FREQUENCY
     Route: 065
  31. LEFLUNOMIDE [Suspect]
     Active Substance: LEFLUNOMIDE
     Dosage: 10.0 MG AT AN UNSPECIFIED FREQUENCY
     Route: 048
  32. LEFLUNOMIDE [Suspect]
     Active Substance: LEFLUNOMIDE
     Dosage: 20.0 MG AT AN UNSPECIFIED FREQUENCY
     Route: 065
  33. PREDNISONE [Suspect]
     Active Substance: PREDNISONE
     Indication: Rheumatoid arthritis
     Dosage: UNSPECIFIED DOSE AND FREQUENCY
     Route: 048
  34. PREDNISONE [Suspect]
     Active Substance: PREDNISONE
     Dosage: 5.0 MG AT AN UNSPECIFIED FREQUENCY
     Route: 065
  35. PREDNISONE [Suspect]
     Active Substance: PREDNISONE
     Dosage: 40.0 MG AT AN UNSPECIFIED FREQUENCY
     Route: 065
  36. PREDNISONE [Suspect]
     Active Substance: PREDNISONE
     Dosage: 20.0 MG, 1 EVERY 1 DAYS
     Route: 048
  37. PREDNISONE [Suspect]
     Active Substance: PREDNISONE
     Dosage: 1.0 MG AT AN UNSPECIFIED FREQUENCY
     Route: 065
  38. PREDNISONE [Suspect]
     Active Substance: PREDNISONE
     Dosage: UNSPECIFIED DOSE AND FREQUENCY
     Route: 048
  39. PREDNISONE [Suspect]
     Active Substance: PREDNISONE
     Dosage: 5.0 MG AT AN UNSPECIFIED FREQUENCY
     Route: 048
  40. PREDNISONE [Suspect]
     Active Substance: PREDNISONE
     Dosage: UNSPECIFIED DOSE AND FREQUENCY
     Route: 065
  41. APREMILAST [Suspect]
     Active Substance: APREMILAST
     Indication: Rheumatoid arthritis
     Dosage: (DOSAGE FORM: NOT SPECIFIED) UNSPECIFIED DOSE AND FREQUENCY
     Route: 065
  42. APREMILAST [Suspect]
     Active Substance: APREMILAST
     Dosage: 6.0 MG, 1 EVERY 1 DAYS
     Route: 065
  43. ARAVA [Suspect]
     Active Substance: LEFLUNOMIDE
     Indication: Rheumatoid arthritis
     Dosage: UNSPECIFIED DOSE AND FREQUENCY
     Route: 065
  44. ARAVA [Suspect]
     Active Substance: LEFLUNOMIDE
     Dosage: 20.0 MG AT AN UNSPECIFIED FREQUENCY
     Route: 048
  45. ARAVA [Suspect]
     Active Substance: LEFLUNOMIDE
     Dosage: 20.0 MG, 1 EVERY 1 DAYS
     Route: 048
  46. ARAVA [Suspect]
     Active Substance: LEFLUNOMIDE
     Dosage: 20.0 MG AT AN UNSPECIFIED FREQUENCY
     Route: 048
  47. ARAVA [Suspect]
     Active Substance: LEFLUNOMIDE
     Dosage: UNSPECIFIED DOSE AND FREQUENCY
     Route: 065
  48. ARAVA [Suspect]
     Active Substance: LEFLUNOMIDE
     Dosage: UNSPECIFIED DOSE AND FREQUENCY
     Route: 048
  49. ATOMOXETINE [Suspect]
     Active Substance: ATOMOXETINE HYDROCHLORIDE
     Indication: Migraine
     Dosage: 1.0 DOSAGE FORMS AT AN UNSPECIFIED FREQUENCY
     Route: 065
  50. BOTULINUM TOXIN TYPE A [Suspect]
     Active Substance: BOTULINUM TOXIN TYPE A
     Indication: Product used for unknown indication
     Dosage: (DOSAGE FORM: POWDER FOR SOLUTION) UNSPECIFIED DOSE AND FREQUENCY
     Route: 065
  51. BUTRANS [Suspect]
     Active Substance: BUPRENORPHINE
     Indication: Product used for unknown indication
     Dosage: UNSPECIFIED DOSE AND FREQUENCY
     Route: 065
  52. CANDESARTAN [Suspect]
     Active Substance: CANDESARTAN
     Indication: Migraine
     Dosage: UNSPECIFIED DOSE AND FREQUENCY
     Route: 048
  53. CERTOLIZUMAB PEGOL [Suspect]
     Active Substance: CERTOLIZUMAB PEGOL
     Indication: Product used for unknown indication
     Dosage: (DOSAGE FORM: NOT SPECIFIED) 200.0 MG AT AN UNSPECIFIED FREQUENCY
     Route: 058
  54. CERTOLIZUMAB PEGOL [Suspect]
     Active Substance: CERTOLIZUMAB PEGOL
     Dosage: (DOSAGE FORM: NOT SPECIFIED) UNSPECIFIED DOSE AND FREQUENCY
     Route: 065
  55. CERTOLIZUMAB PEGOL [Suspect]
     Active Substance: CERTOLIZUMAB PEGOL
     Dosage: (DOSAGE FORM: NOT SPECIFIED) UNSPECIFIED DOSE AND FREQUENCY
     Route: 058
  56. CERTOLIZUMAB PEGOL [Suspect]
     Active Substance: CERTOLIZUMAB PEGOL
     Dosage: (DOSAGE FORM: NOT SPECIFIED) 200.0 MG AT AN UNSPECIFIED FREQUENCY
     Route: 058
  57. CETIRIZINE HYDROCHLORIDE [Suspect]
     Active Substance: CETIRIZINE HYDROCHLORIDE
     Indication: Rheumatoid arthritis
     Dosage: (DOSAGE FORM: NOT SPECIFIED) 25.0 MG AT AN UNSPECIFIED FREQUENCY
     Route: 065
  58. CETIRIZINE HYDROCHLORIDE [Suspect]
     Active Substance: CETIRIZINE HYDROCHLORIDE
     Dosage: (DOSAGE FORM: NOT SPECIFIED) 10.0 MG AT AN UNSPECIFIED FREQUENCY
     Route: 065
  59. CETIRIZINE HYDROCHLORIDE [Suspect]
     Active Substance: CETIRIZINE HYDROCHLORIDE
     Dosage: (DOSAGE FORM: NOT SPECIFIED) 25.0 MG AT AN UNSPECIFIED FREQUENCY
     Route: 065
  60. CETIRIZINE HYDROCHLORIDE [Suspect]
     Active Substance: CETIRIZINE HYDROCHLORIDE
     Dosage: (DOSAGE FORM: NOT SPECIFIED) UNSPECIFIED DOSE AND FREQUENCY
     Route: 065
  61. CETIRIZINE HYDROCHLORIDE [Suspect]
     Active Substance: CETIRIZINE HYDROCHLORIDE
     Dosage: (DOSAGE FORM: NOT SPECIFIED) 10.0 MG AT AN UNSPECIFIED FREQUENCY
     Route: 065
  62. CETIRIZINE HYDROCHLORIDE [Suspect]
     Active Substance: CETIRIZINE HYDROCHLORIDE
     Dosage: (DOSAGE FORM: NOT SPECIFIED) 25.0 MG AT AN UNSPECIFIED FREQUENCY
     Route: 065
  63. CETIRIZINE HYDROCHLORIDE [Suspect]
     Active Substance: CETIRIZINE HYDROCHLORIDE
     Dosage: (DOSAGE FORM: NOT SPECIFIED) 10.0 MG AT AN UNSPECIFIED FREQUENCY
     Route: 065
  64. CETIRIZINE HYDROCHLORIDE [Suspect]
     Active Substance: CETIRIZINE HYDROCHLORIDE
     Dosage: (DOSAGE FORM: NOT SPECIFIED) 10.0 MG AT AN UNSPECIFIED FREQUENCY
     Route: 048
  65. CETIRIZINE HYDROCHLORIDE [Suspect]
     Active Substance: CETIRIZINE HYDROCHLORIDE
     Dosage: (DOSAGE FORM: NOT SPECIFIED) UNSPECIFIED DOSE AND FREQUENCY
     Route: 065
  66. CETIRIZINE HYDROCHLORIDE [Suspect]
     Active Substance: CETIRIZINE HYDROCHLORIDE
     Dosage: (DOSAGE FORM: NOT SPECIFIED) 10.0 MG AT AN UNSPECIFIED FREQUENCY
     Route: 065
  67. CETIRIZINE HYDROCHLORIDE [Suspect]
     Active Substance: CETIRIZINE HYDROCHLORIDE
     Dosage: (DOSAGE FORM: NOT SPECIFIED) 25.0 MG AT AN UNSPECIFIED FREQUENCY
     Route: 065
  68. CETIRIZINE HYDROCHLORIDE [Suspect]
     Active Substance: CETIRIZINE HYDROCHLORIDE
     Dosage: (DOSAGE FORM: NOT SPECIFIED) 10.0 MG AT AN UNSPECIFIED FREQUENCY
     Route: 065
  69. CETIRIZINE HYDROCHLORIDE [Suspect]
     Active Substance: CETIRIZINE HYDROCHLORIDE
     Dosage: (DOSAGE FORM: NOT SPECIFIED) 10.0 MG AT AN UNSPECIFIED FREQUENCY
     Route: 048
  70. CETIRIZINE HYDROCHLORIDE [Suspect]
     Active Substance: CETIRIZINE HYDROCHLORIDE
     Dosage: (DOSAGE FORM: NOT SPECIFIED) 25.0 MG AT AN UNSPECIFIED FREQUENCY
     Route: 048
  71. CETIRIZINE HYDROCHLORIDE [Suspect]
     Active Substance: CETIRIZINE HYDROCHLORIDE
     Dosage: (DOSAGE FORM: NOT SPECIFIED) 25.0 MG AT AN UNSPECIFIED FREQUENCY
     Route: 065
  72. CETIRIZINE HYDROCHLORIDE [Suspect]
     Active Substance: CETIRIZINE HYDROCHLORIDE
     Dosage: (DOSAGE FORM: NOT SPECIFIED) 25.0 MG AT AN UNSPECIFIED FREQUENCY
     Route: 048
  73. CETIRIZINE HYDROCHLORIDE [Suspect]
     Active Substance: CETIRIZINE HYDROCHLORIDE
     Dosage: (DOSAGE FORM: NOT SPECIFIED) 25.0 MG AT AN UNSPECIFIED FREQUENCY
     Route: 065
  74. CETIRIZINE HYDROCHLORIDE [Suspect]
     Active Substance: CETIRIZINE HYDROCHLORIDE
     Dosage: (DOSAGE FORM: NOT SPECIFIED) 10.0 MG AT AN UNSPECIFIED FREQUENCY
     Route: 065
  75. CETIRIZINE HYDROCHLORIDE [Suspect]
     Active Substance: CETIRIZINE HYDROCHLORIDE
     Dosage: (DOSAGE FORM: NOT SPECIFIED) 10.0 MG AT AN UNSPECIFIED FREQUENCY
     Route: 048
  76. CETIRIZINE HYDROCHLORIDE [Suspect]
     Active Substance: CETIRIZINE HYDROCHLORIDE
     Dosage: (DOSAGE FORM: NOT SPECIFIED) 25.0 MG AT AN UNSPECIFIED FREQUENCY
     Route: 048
  77. CETIRIZINE HYDROCHLORIDE [Suspect]
     Active Substance: CETIRIZINE HYDROCHLORIDE
     Dosage: (DOSAGE FORM: NOT SPECIFIED) UNSPECIFIED DOSE AND FREQUENCY
     Route: 065
  78. CETIRIZINE HYDROCHLORIDE [Suspect]
     Active Substance: CETIRIZINE HYDROCHLORIDE
     Dosage: (DOSAGE FORM: NOT SPECIFIED) 25.0 MG AT AN UNSPECIFIED FREQUENCY
     Route: 048
  79. CETIRIZINE HYDROCHLORIDE [Suspect]
     Active Substance: CETIRIZINE HYDROCHLORIDE
     Dosage: (DOSAGE FORM: NOT SPECIFIED) UNSPECIFIED DOSE AND FREQUENCY
     Route: 065
  80. CETIRIZINE HYDROCHLORIDE [Suspect]
     Active Substance: CETIRIZINE HYDROCHLORIDE
     Dosage: (DOSAGE FORM: NOT SPECIFIED) 10.0 MG AT AN UNSPECIFIED FREQUENCY
     Route: 065
  81. CETIRIZINE HYDROCHLORIDE [Suspect]
     Active Substance: CETIRIZINE HYDROCHLORIDE
     Dosage: (DOSAGE FORM: NOT SPECIFIED) UNSPECIFIED DOSE AND FREQUENCY
     Route: 065
  82. CETIRIZINE HYDROCHLORIDE [Suspect]
     Active Substance: CETIRIZINE HYDROCHLORIDE
     Dosage: (DOSAGE FORM: NOT SPECIFIED) UNSPECIFIED DOSE AND FREQUENCY
     Route: 016
  83. CHLORHEXIDINE GLUCONATE [Suspect]
     Active Substance: CHLORHEXIDINE GLUCONATE
     Indication: Product used for unknown indication
     Dosage: (DOSAGE FORM: NOT SPECIFIED) UNSPECIFIED DOSE AND FREQUENCY
     Route: 065
  84. CHLORHEXIDINE GLUCONATE [Suspect]
     Active Substance: CHLORHEXIDINE GLUCONATE
     Dosage: (DOSAGE FORM: NOT SPECIFIED) UNSPECIFIED DOSE AND FREQUENCY
     Route: 061
  85. CIMZIA [Suspect]
     Active Substance: CERTOLIZUMAB PEGOL
     Indication: Rheumatoid arthritis
     Dosage: 200.0 MG AT AN UNSPECIFIED FREQUENCY
     Route: 058
  86. CIMZIA [Suspect]
     Active Substance: CERTOLIZUMAB PEGOL
     Indication: Psoriasis
     Dosage: (DOSAGE FORM: SOLUTION FOR INJECTION IN PRE-FILLED SYRINGE) 400.0 MG AT AN UNSPECIFIED FREQUENCY
     Route: 058
  87. CIMZIA [Suspect]
     Active Substance: CERTOLIZUMAB PEGOL
     Dosage: (DOSAGE FORM: SOLUTION FOR INJECTION IN PRE-FILLED SYRINGE) UNSPECIFIED DOSE AND FREQUENCY
     Route: 065
  88. CIMZIA [Suspect]
     Active Substance: CERTOLIZUMAB PEGOL
     Dosage: (DOSAGE FORM: SOLUTION FOR INJECTION IN PRE-FILLED SYRINGE) UNSPECIFIED DOSE AND FREQUENCY
     Route: 058
  89. CORTISONE ACETATE [Suspect]
     Active Substance: CORTISONE ACETATE
     Indication: Rheumatoid arthritis
     Dosage: (DOSAGE FORM: NOT SPECIFIED) 25.0 MG AT AN UNSPECIFIED FREQUENCY
     Route: 048
  90. CORTISONE ACETATE [Suspect]
     Active Substance: CORTISONE ACETATE
     Dosage: (DOSAGE FORM: NOT SPECIFIED) 25.0 MG AT AN UNSPECIFIED FREQUENCY
     Route: 061
  91. CORTISONE ACETATE [Suspect]
     Active Substance: CORTISONE ACETATE
     Dosage: (DOSAGE FORM: OINTMENT) UNSPECIFIED DOSE AND FREQUENCY
     Route: 065
  92. COSENTYX [Suspect]
     Active Substance: SECUKINUMAB
     Indication: Rheumatoid arthritis
     Dosage: (DOSAGE FORM: NOT SPECIFIED) 300.0 MG AT AN UNSPECIFIED FREQUENCY
     Route: 065
  93. COSENTYX [Suspect]
     Active Substance: SECUKINUMAB
     Indication: Psoriatic arthropathy
     Dosage: UNSPECIFIED DOSE AND FREQUENCY
     Route: 065
  94. DESOXIMETASONE [Suspect]
     Active Substance: DESOXIMETASONE
     Indication: Rheumatoid arthritis
     Dosage: (DOSAGE FORM: NOT SPECIFIED) UNSPECIFIED DOSE AND FREQUENCY
     Route: 065
  95. DESOXIMETASONE [Suspect]
     Active Substance: DESOXIMETASONE
     Dosage: (DOSAGE FORM: NOT SPECIFIED) UNSPECIFIED DOSE AND FREQUENCY
     Route: 048
  96. DESOXIMETASONE [Suspect]
     Active Substance: DESOXIMETASONE
     Dosage: (DOSAGE FORM: NOT SPECIFIED) 25.0 MG AT AN UNSPECIFIED FREQUENCY
     Route: 065
  97. DESOXIMETASONE [Suspect]
     Active Substance: DESOXIMETASONE
     Dosage: (DOSAGE FORM: NOT SPECIFIED) 25.0 MG AT AN UNSPECIFIED FREQUENCY
     Route: 048
  98. DESOXIMETASONE [Suspect]
     Active Substance: DESOXIMETASONE
     Dosage: (DOSAGE FORM: NOT SPECIFIED) 25.0 MG AT AN UNSPECIFIED FREQUENCY
     Route: 065
  99. DESOXIMETASONE [Suspect]
     Active Substance: DESOXIMETASONE
     Dosage: (DOSAGE FORM: NOT SPECIFIED) UNSPECIFIED DOSE AND FREQUENCY
     Route: 058
  100. DESOXIMETASONE [Suspect]
     Active Substance: DESOXIMETASONE
     Dosage: (DOSAGE FORM: NOT SPECIFIED) UNSPECIFIED DOSE AND FREQUENCY
     Route: 048
  101. DESOXIMETASONE [Suspect]
     Active Substance: DESOXIMETASONE
     Dosage: (DOSAGE FORM: NOT SPECIFIED) UNSPECIFIED DOSE AND FREQUENCY
     Route: 065
  102. DESOXIMETASONE [Suspect]
     Active Substance: DESOXIMETASONE
     Dosage: (DOSAGE FORM: NOT SPECIFIED) UNSPECIFIED DOSE AND FREQUENCY
     Route: 058
  103. DESOXIMETASONE [Suspect]
     Active Substance: DESOXIMETASONE
     Dosage: (DOSAGE FORM: NOT SPECIFIED) UNSPECIFIED DOSE AND FREQUENCY
     Route: 048
  104. DESOXIMETASONE [Suspect]
     Active Substance: DESOXIMETASONE
     Dosage: (DOSAGE FORM: NOT SPECIFIED) 25.0 MG AT AN UNSPECIFIED FREQUENCY
     Route: 048
  105. DESOXIMETASONE [Suspect]
     Active Substance: DESOXIMETASONE
     Dosage: (DOSAGE FORM: NOT SPECIFIED) UNSPECIFIED DOSE AND FREQUENCY
     Route: 058
  106. DESOXIMETASONE [Suspect]
     Active Substance: DESOXIMETASONE
     Dosage: (DOSAGE FORM: NOT SPECIFIED) UNSPECIFIED DOSE AND FREQUENCY
     Route: 048
  107. DESOXIMETASONE [Suspect]
     Active Substance: DESOXIMETASONE
     Dosage: (DOSAGE FORM: NOT SPECIFIED) UNSPECIFIED DOSE AND FREQUENCY
     Route: 065
  108. DESOXIMETASONE [Suspect]
     Active Substance: DESOXIMETASONE
     Dosage: (DOSAGE FORM: NOT SPECIFIED) 25.0 MG AT AN UNSPECIFIED FREQUENCY
     Route: 058
  109. DICLOFENAC SODIUM [Suspect]
     Active Substance: DICLOFENAC SODIUM
     Indication: Product used for unknown indication
     Dosage: (DOSAGE FORM: NOT SPECIFIED) UNSPECIFIED DOSE AND FREQUENCY
     Route: 058
  110. DICLOFENAC SODIUM [Suspect]
     Active Substance: DICLOFENAC SODIUM
     Dosage: (DOSAGE FORM: NOT SPECIFIED) 50.0 MG AT AN UNSPECIFIED FREQUENCY
     Route: 065
  111. DICLOFENAC SODIUM [Suspect]
     Active Substance: DICLOFENAC SODIUM
     Dosage: (DOSAGE FORM: NOT SPECIFIED) UNSPECIFIED DOSE AND FREQUENCY
     Route: 065
  112. ENBREL [Suspect]
     Active Substance: ETANERCEPT
     Indication: Rheumatoid arthritis
     Dosage: (DOSAGE FORM: NOT SPECIFIED) UNSPECIFIED DOSE AND FREQUENCY
     Route: 065
  113. ENBREL [Suspect]
     Active Substance: ETANERCEPT
     Dosage: (DOSAGE FORM: NOT SPECIFIED) UNSPECIFIED DOSE AND FREQUENCY
     Route: 058
  114. ENBREL [Suspect]
     Active Substance: ETANERCEPT
     Dosage: (DOSAGE FORM: NOT SPECIFIED) UNSPECIFIED DOSE AND FREQUENCY
     Route: 065
  115. ENBREL [Suspect]
     Active Substance: ETANERCEPT
     Dosage: (DOSAGE FORM: NOT SPECIFIED) 10.0 MG, 1 EVERY 1 WEEKS
     Route: 065
  116. ENBREL [Suspect]
     Active Substance: ETANERCEPT
     Dosage: (DOSAGE FORM: NOT SPECIFIED) 50.0 MG AT AN UNSPECIFIED FREQUENCY
     Route: 058
  117. ENBREL [Suspect]
     Active Substance: ETANERCEPT
     Dosage: (DOSAGE FORM: NOT SPECIFIED) 40.0 MG AT AN UNSPECIFIED FREQUENCY
     Route: 058
  118. ENBREL [Suspect]
     Active Substance: ETANERCEPT
     Dosage: (DOSAGE FORM: NOT SPECIFIED) 50.0 MG, 1 EVERY 1 WEEKS
     Route: 065
  119. ENBREL [Suspect]
     Active Substance: ETANERCEPT
     Dosage: (DOSAGE FORM: NOT SPECIFIED) 50.0 MG AT AN UNSPECIFIED FREQUENCY
     Route: 058
  120. ENBREL [Suspect]
     Active Substance: ETANERCEPT
     Dosage: (DOSAGE FORM: NOT SPECIFIED) UNSPECIFIED DOSE AND FREQUENCY
     Route: 058
  121. ERELZI [Suspect]
     Active Substance: ETANERCEPT-SZZS
     Indication: Rheumatoid arthritis
     Dosage: (DOSAGE FORM: NOT SPECIFIED) UNSPECIFIED DOSE AND FREQUENCY
     Route: 065
  122. ERELZI [Suspect]
     Active Substance: ETANERCEPT-SZZS
     Dosage: (DOSAGE FORM: NOT SPECIFIED) UNSPECIFIED DOSE AND FREQUENCY
     Route: 058
  123. FLUMETHASONE PIVALATE [Suspect]
     Active Substance: FLUMETHASONE PIVALATE
     Indication: Product used for unknown indication
     Dosage: UNSPECIFIED DOSE AND FREQUENCY
     Route: 065
  124. FOLIC ACID [Suspect]
     Active Substance: FOLIC ACID
     Indication: Rheumatoid arthritis
     Dosage: 15.0 MG AT AN UNSPECIFIED FREQUENCY
     Route: 065
  125. FOLIC ACID [Suspect]
     Active Substance: FOLIC ACID
     Dosage: 500.0 MG AT AN UNSPECIFIED FREQUENCY
     Route: 048
  126. FOLIC ACID [Suspect]
     Active Substance: FOLIC ACID
     Dosage: 500.0 MG AT AN UNSPECIFIED FREQUENCY
     Route: 065
  127. FOLIC ACID [Suspect]
     Active Substance: FOLIC ACID
     Dosage: 1.0 MG AT AN UNSPECIFIED FREQUENCY
     Route: 058
  128. FOLIC ACID [Suspect]
     Active Substance: FOLIC ACID
     Dosage: 0.5 MG AT AN UNSPECIFIED FREQUENCY
     Route: 065
  129. FOLIC ACID [Suspect]
     Active Substance: FOLIC ACID
     Dosage: 25.0 MG AT AN UNSPECIFIED FREQUENCY
     Route: 065
  130. FOLIC ACID [Suspect]
     Active Substance: FOLIC ACID
     Dosage: (DOSAGE FORM: NOT SPECIFIED) 1.0 MG AT AN UNSPECIFIED FREQUENCY
     Route: 065
  131. FOLIC ACID [Suspect]
     Active Substance: FOLIC ACID
     Dosage: 50.0 MG AT AN UNSPECIFIED FREQUENCY
     Route: 065
  132. FOLIC ACID [Suspect]
     Active Substance: FOLIC ACID
     Dosage: UNSPECIFIED DOSE AND FREQUENCY
     Route: 065
  133. FOLIC ACID [Suspect]
     Active Substance: FOLIC ACID
     Dosage: 0.5 MG AT AN UNSPECIFIED FREQUENCY
     Route: 048
  134. FOLIC ACID [Suspect]
     Active Substance: FOLIC ACID
     Dosage: 25.0 MG AT AN UNSPECIFIED FREQUENCY
     Route: 048
  135. FOLIC ACID [Suspect]
     Active Substance: FOLIC ACID
     Dosage: 5.0 MG AT AN UNSPECIFIED FREQUENCY
     Route: 065
  136. FOLIC ACID [Suspect]
     Active Substance: FOLIC ACID
     Dosage: 15.0 MG AT AN UNSPECIFIED FREQUENCY
     Route: 048
  137. FOSAMAX [Suspect]
     Active Substance: ALENDRONATE SODIUM
     Indication: Rheumatoid arthritis
     Dosage: UNSPECIFIED DOSE AND FREQUENCY
     Route: 048
  138. FOSAMAX [Suspect]
     Active Substance: ALENDRONATE SODIUM
     Dosage: UNSPECIFIED DOSE AND FREQUENCY
     Route: 065
  139. FOSAMAX [Suspect]
     Active Substance: ALENDRONATE SODIUM
     Dosage: UNSPECIFIED DOSE AND FREQUENCY
     Route: 016
  140. FOSAMAX [Suspect]
     Active Substance: ALENDRONATE SODIUM
     Dosage: UNSPECIFIED DOSE AND FREQUENCY
     Route: 065
  141. FOSAMAX [Suspect]
     Active Substance: ALENDRONATE SODIUM
     Dosage: UNSPECIFIED DOSE AND FREQUENCY
     Route: 058
  142. GOLIMUMAB [Suspect]
     Active Substance: GOLIMUMAB
     Indication: Rheumatoid arthritis
     Dosage: (DOSAGE FORM: SOLUTION FOR INJECTION IN PRE-FILLED SYRINGE) UNSPECIFIED DOSE AND FREQUENCY
     Route: 065
  143. GOLIMUMAB [Suspect]
     Active Substance: GOLIMUMAB
     Indication: Prostatic specific antigen
     Dosage: (DOSAGE FORM: SOLUTION FOR INJECTION IN PRE-FILLED SYRINGE) UNSPECIFIED DOSE AND FREQUENCY
     Route: 058
  144. GOLIMUMAB [Suspect]
     Active Substance: GOLIMUMAB
     Dosage: (DOSAGE FORM: SOLUTION FOR INJECTION IN PRE-FILLED SYRINGE) UNSPECIFIED DOSE AND FREQUENCY
     Route: 065
  145. GOLIMUMAB [Suspect]
     Active Substance: GOLIMUMAB
     Dosage: (DOSAGE FORM: NOT SPECIFIED) UNSPECIFIED DOSE AND FREQUENCY
     Route: 058
  146. HUMIRA [Suspect]
     Active Substance: ADALIMUMAB
     Indication: Rheumatoid arthritis
     Dosage: (DOSAGE FORM: SOLUTION FOR INJECTION IN PRE-FILLED SYRINGE) UNSPECIFIED DOSE AND FREQUENCY
     Route: 058
  147. HUMIRA [Suspect]
     Active Substance: ADALIMUMAB
     Dosage: (DOSAGE FORM: SOLUTION FOR INJECTION IN PRE-FILLED SYRINGE) UNSPECIFIED DOSE AND FREQUENCY
     Route: 065
  148. HUMIRA [Suspect]
     Active Substance: ADALIMUMAB
     Dosage: (DOSAGE FORM: SOLUTION SUBCUTANEOUS) UNSPECIFIED DOSE AND FREQUENCY
     Route: 065
  149. HUMIRA [Suspect]
     Active Substance: ADALIMUMAB
     Dosage: (DOSAGE FORM: SOLUTION FOR INJECTION IN PRE-FILLED SYRINGE) 4.0 MG AT AN UNSPECIFIED FREQUENCY
     Route: 058
  150. HUMIRA [Suspect]
     Active Substance: ADALIMUMAB
     Dosage: (DOSAGE FORM: SOLUTION FOR INJECTION IN PRE-FILLED SYRINGE) 40.0 MG AT AN UNSPECIFIED FREQUENCY
     Route: 065
  151. HUMIRA [Suspect]
     Active Substance: ADALIMUMAB
     Dosage: (DOSAGE FORM: SOLUTION FOR INJECTION IN PRE-FILLED SYRINGE) 40.0 MG AT AN UNSPECIFIED FREQUENCY
     Route: 058
  152. HYDROXYCHLOROQUINE [Suspect]
     Active Substance: HYDROXYCHLOROQUINE
     Indication: Rheumatoid arthritis
     Dosage: (DOSAGE FORM: NOT SPECIFIED) 40.0 MG AT AN UNSPECIFIED FREQUENCY
     Route: 065
  153. HYDROXYCHLOROQUINE [Suspect]
     Active Substance: HYDROXYCHLOROQUINE
     Dosage: (DOSAGE FORM: NOT SPECIFIED) 400.0 MG, 1 EVERY 1 DAYS
     Route: 065
  154. HYDROXYCHLOROQUINE [Suspect]
     Active Substance: HYDROXYCHLOROQUINE
     Dosage: (DOSAGE FORM: NOT SPECIFIED) 400.0 MG, 1 EVERY 1 DAYS
     Route: 048
  155. HYDROXYCHLOROQUINE [Suspect]
     Active Substance: HYDROXYCHLOROQUINE
     Dosage: (DOSAGE FORM: NOT SPECIFIED) UNSPECIFIED DOSE AND FREQUENCY
     Route: 058
  156. HYDROXYCHLOROQUINE [Suspect]
     Active Substance: HYDROXYCHLOROQUINE
     Dosage: (DOSAGE FORM: NOT SPECIFIED) UNSPECIFIED DOSE AND FREQUENCY
     Route: 048
  157. HYDROXYCHLOROQUINE [Suspect]
     Active Substance: HYDROXYCHLOROQUINE
     Dosage: (DOSAGE FORM: NOT SPECIFIED) UNSPECIFIED DOSE AND FREQUENCY
     Route: 065
  158. HYDROXYCHLOROQUINE [Suspect]
     Active Substance: HYDROXYCHLOROQUINE
     Dosage: (DOSAGE FORM: NOT SPECIFIED) UNSPECIFIED DOSE AND FREQUENCY
     Route: 048
  159. HYDROXYCHLOROQUINE [Suspect]
     Active Substance: HYDROXYCHLOROQUINE
     Dosage: (DOSAGE FORM: NOT SPECIFIED) UNSPECIFIED DOSE AND FREQUENCY
     Route: 058
  160. HYDROXYCHLOROQUINE [Suspect]
     Active Substance: HYDROXYCHLOROQUINE
     Dosage: (DOSAGE FORM: NOT SPECIFIED) 400.0 MG, 1 EVERY 1 DAYS
     Route: 048
  161. HYDROXYCHLOROQUINE [Suspect]
     Active Substance: HYDROXYCHLOROQUINE
     Dosage: (DOSAGE FORM: NOT SPECIFIED) UNSPECIFIED DOSE AND FREQUENCY
     Route: 048
  162. HYDROXYCHLOROQUINE [Suspect]
     Active Substance: HYDROXYCHLOROQUINE
     Dosage: (DOSAGE FORM: NOT SPECIFIED) UNSPECIFIED DOSE AND FREQUENCY
     Route: 058
  163. HYDROXYCHLOROQUINE [Suspect]
     Active Substance: HYDROXYCHLOROQUINE
     Dosage: (DOSAGE FORM: NOT SPECIFIED) UNSPECIFIED DOSE AND FREQUENCY
     Route: 065
  164. HYDROXYCHLOROQUINE [Suspect]
     Active Substance: HYDROXYCHLOROQUINE
     Dosage: (DOSAGE FORM: NOT SPECIFIED) 40.0 MG, 1 EVERY 1 DAYS
     Route: 048
  165. HYDROXYCHLOROQUINE [Suspect]
     Active Substance: HYDROXYCHLOROQUINE
     Dosage: (DOSAGE FORM: NOT SPECIFIED) UNSPECIFIED DOSE AND FREQUENCY
     Route: 065
  166. HYDROXYCHLOROQUINE [Suspect]
     Active Substance: HYDROXYCHLOROQUINE
     Dosage: (DOSAGE FORM: NOT SPECIFIED) 400.0 MG, 1 EVERY 1 DAYS
     Route: 065
  167. HYDROXYCHLOROQUINE [Suspect]
     Active Substance: HYDROXYCHLOROQUINE
     Dosage: (DOSAGE FORM: NOT SPECIFIED) UNSPECIFIED DOSE AND FREQUENCY
     Route: 016
  168. HYDROXYCHLOROQUINE [Suspect]
     Active Substance: HYDROXYCHLOROQUINE
     Dosage: (DOSAGE FORM: NOT SPECIFIED) 400.0 MG, 1 EVERY 1 DAYS
     Route: 048
  169. HYDROXYCHLOROQUINE [Suspect]
     Active Substance: HYDROXYCHLOROQUINE
     Dosage: (DOSAGE FORM: NOT SPECIFIED) UNSPECIFIED DOSE AND FREQUENCY
     Route: 065
  170. HYDROXYCHLOROQUINE [Suspect]
     Active Substance: HYDROXYCHLOROQUINE
     Dosage: (DOSAGE FORM: NOT SPECIFIED) 400.0 MG, 1 EVERY 1 DAYS
     Route: 048
  171. HYDROXYCHLOROQUINE SULFATE [Suspect]
     Active Substance: HYDROXYCHLOROQUINE SULFATE
     Indication: Rheumatoid arthritis
     Dosage: 40.0 MG, 1 EVERY 1 DAYS
     Route: 065
  172. HYDROXYCHLOROQUINE SULFATE [Suspect]
     Active Substance: HYDROXYCHLOROQUINE SULFATE
     Dosage: UNSPECIFIED DOSE AND FREQUENCY
     Route: 065
  173. HYDROXYCHLOROQUINE SULFATE [Suspect]
     Active Substance: HYDROXYCHLOROQUINE SULFATE
     Dosage: UNSPECIFIED DOSE AND FREQUENCY
     Route: 048
  174. HYDROXYCHLOROQUINE SULFATE [Suspect]
     Active Substance: HYDROXYCHLOROQUINE SULFATE
     Dosage: 400.0 MG AT AN UNSPECIFIED FREQUENCY
     Route: 065
  175. HYDROXYCHLOROQUINE SULFATE [Suspect]
     Active Substance: HYDROXYCHLOROQUINE SULFATE
     Dosage: 400.0 MG, 1 EVERY 1 DAYS
     Route: 048
  176. HYDROXYCHLOROQUINE SULFATE [Suspect]
     Active Substance: HYDROXYCHLOROQUINE SULFATE
     Dosage: 400.0 MG, 1 EVERY 1 DAYS
     Route: 065
  177. HYDROXYCHLOROQUINE SULFATE [Suspect]
     Active Substance: HYDROXYCHLOROQUINE SULFATE
     Dosage: UNSPECIFIED DOSE AND FREQUENCY
     Route: 048
  178. HYDROXYCHLOROQUINE SULFATE [Suspect]
     Active Substance: HYDROXYCHLOROQUINE SULFATE
     Dosage: UNSPECIFIED DOSE AND FREQUENCY
     Route: 065
  179. HYDROXYCHLOROQUINE SULFATE [Suspect]
     Active Substance: HYDROXYCHLOROQUINE SULFATE
     Dosage: 40.0 MG AT AN UNSPECIFIED FREQUENCY
     Route: 065
  180. INFLIXIMAB [Suspect]
     Active Substance: INFLIXIMAB
     Indication: Rheumatoid arthritis
     Dosage: (DOSAGE FORM: NOT SPECIFIED) 400.0 MG AT AN UNSPECIFIED FREQUENCY
     Route: 042
  181. INFLIXIMAB [Suspect]
     Active Substance: INFLIXIMAB
     Dosage: (DOSAGE FORM: NOT SPECIFIED) UNSPECIFIED DOSE AND FREQUENCY
     Route: 042
  182. INFLIXIMAB [Suspect]
     Active Substance: INFLIXIMAB
     Dosage: (DOSAGE FORM: NOT SPECIFIED) 400.0 MG AT AN UNSPECIFIED FREQUENCY
     Route: 042
  183. INFLIXIMAB [Suspect]
     Active Substance: INFLIXIMAB
     Dosage: (DOSAGE FORM: NOT SPECIFIED) UNSPECIFIED DOSE AND FREQUENCY
     Route: 065
  184. INFLIXIMAB [Suspect]
     Active Substance: INFLIXIMAB
     Dosage: (DOSAGE FORM: NOT SPECIFIED) 400.0 MG AT AN UNSPECIFIED FREQUENCY
     Route: 042
  185. LAMICTAL [Suspect]
     Active Substance: LAMOTRIGINE
     Indication: Product used for unknown indication
     Dosage: 25.0 MG AT AN UNSPECIFIED FREQUENCY
     Route: 048
  186. LAMICTAL [Suspect]
     Active Substance: LAMOTRIGINE
     Dosage: 50.0 MG AT AN UNSPECIFIED FREQUENCY
     Route: 048
  187. LAMICTAL [Suspect]
     Active Substance: LAMOTRIGINE
     Dosage: 25.0 MG AT AN UNSPECIFIED FREQUENCY
     Route: 048
  188. LAMICTAL [Suspect]
     Active Substance: LAMOTRIGINE
     Dosage: 50.0 MG AT AN UNSPECIFIED FREQUENCY
     Route: 048
  189. LAMICTAL [Suspect]
     Active Substance: LAMOTRIGINE
     Dosage: 25.0 MG AT AN UNSPECIFIED FREQUENCY
     Route: 048
  190. LAMICTAL [Suspect]
     Active Substance: LAMOTRIGINE
     Dosage: 50.0 MG AT AN UNSPECIFIED FREQUENCY
     Route: 048
  191. LEFLUNOMIDE [Suspect]
     Active Substance: LEFLUNOMIDE
     Indication: Rheumatoid arthritis
     Dosage: (DOSAGE FORM: NOT SPECIFIED) 10.0 MG, 1 EVERY 1 DAYS
     Route: 065
  192. LEFLUNOMIDE [Suspect]
     Active Substance: LEFLUNOMIDE
     Dosage: UNSPECIFIED DOSE AND FREQUENCY
     Route: 065
  193. LEFLUNOMIDE [Suspect]
     Active Substance: LEFLUNOMIDE
     Dosage: 10.0 MG, 1 EVERY 1 DAYS
     Route: 065
  194. LEFLUNOMIDE [Suspect]
     Active Substance: LEFLUNOMIDE
     Dosage: 20.0 MG, 1 EVERY 1 DAYS
     Route: 065
  195. LEFLUNOMIDE [Suspect]
     Active Substance: LEFLUNOMIDE
     Dosage: 20.0 MG AT AN UNSPECIFIED FREQUENCY
     Route: 065
  196. LEFLUNOMIDE [Suspect]
     Active Substance: LEFLUNOMIDE
     Dosage: UNSPECIFIED DOSE AND FREQUENCY
     Route: 048
  197. METHOTREXATE [Suspect]
     Active Substance: METHOTREXATE
     Indication: Rheumatoid arthritis
     Dosage: (DOSAGE FORM: NOT SPECIFIED) 225.0 MG AT AN UNSPECIFIED FREQUENCY
     Route: 065
  198. METHOTREXATE [Suspect]
     Active Substance: METHOTREXATE
     Dosage: 20.0 MG, 1 EVERY 1 WEEKS
     Route: 065
  199. METHOTREXATE [Suspect]
     Active Substance: METHOTREXATE
     Dosage: UNSPECIFIED DOSE AND FREQUENCY
     Route: 065
  200. METHOTREXATE [Suspect]
     Active Substance: METHOTREXATE
     Dosage: 25.0 MG, 1 EVERY 1 WEEKS
     Route: 048
  201. METHOTREXATE [Suspect]
     Active Substance: METHOTREXATE
     Dosage: 50.0 MG, 1 EVERY 1 DAYS
     Route: 065
  202. METHOTREXATE [Suspect]
     Active Substance: METHOTREXATE
     Dosage: 25.0 MG AT AN UNSPECIFIED FREQUENCY
     Route: 065
  203. METHOTREXATE [Suspect]
     Active Substance: METHOTREXATE
     Dosage: 40.0 MG AT AN UNSPECIFIED FREQUENCY
     Route: 048
  204. METHOTREXATE [Suspect]
     Active Substance: METHOTREXATE
     Dosage: 25.0 MG AT AN UNSPECIFIED FREQUENCY
     Route: 048
  205. METHOTREXATE [Suspect]
     Active Substance: METHOTREXATE
     Dosage: 25.0 MG, 1 EVERY 1 WEEKS
     Route: 048
  206. METHOTREXATE [Suspect]
     Active Substance: METHOTREXATE
     Dosage: 50.0 MG, 1 EVERY 1 DAYS
     Route: 048
  207. METHOTREXATE [Suspect]
     Active Substance: METHOTREXATE
     Dosage: 25.0 MG, 1 EVERY 1 WEEKS
     Route: 065
  208. METHOTREXATE [Suspect]
     Active Substance: METHOTREXATE
     Dosage: UNSPECIFIED DOSE AND FREQUENCY
     Route: 016
  209. METHOTREXATE [Suspect]
     Active Substance: METHOTREXATE
     Dosage: 20.0 MG, 1 EVERY 1 WEEKS
     Route: 058
  210. METHOTREXATE [Suspect]
     Active Substance: METHOTREXATE
     Dosage: 20.0 MG, 1 EVERY 1 DAYS
     Route: 048
  211. METHOTREXATE [Suspect]
     Active Substance: METHOTREXATE
     Dosage: 25.0 MG, 1 EVERY 1 WEEKS
     Route: 048
  212. METHOTREXATE [Suspect]
     Active Substance: METHOTREXATE
     Dosage: 25.0 MG AT AN UNSPECIFIED FREQUENCY
     Route: 013
  213. METHOTREXATE [Suspect]
     Active Substance: METHOTREXATE
     Dosage: 1.0 MG AT AN UNSPECIFIED FREQUENCY
     Route: 048
  214. METHOTREXATE [Suspect]
     Active Substance: METHOTREXATE
     Dosage: 25.0 MG, 1 EVERY 1 WEEKS
     Route: 065
  215. METHOTREXATE [Suspect]
     Active Substance: METHOTREXATE
     Dosage: 25.0 MG, 1 EVERY 1 DAYS
     Route: 065
  216. METHOTREXATE [Suspect]
     Active Substance: METHOTREXATE
     Dosage: 25.0 MG, 1 EVERY 1 WEEKS
     Route: 013
  217. METHOTREXATE [Suspect]
     Active Substance: METHOTREXATE
     Dosage: 15.0 MG, 1 EVERY 1 WEEKS
     Route: 058
  218. METHOTREXATE [Suspect]
     Active Substance: METHOTREXATE
     Dosage: UNSPECIFIED DOSE AND FREQUENCY
     Route: 058
  219. MYRBETRIQ [Suspect]
     Active Substance: MIRABEGRON
     Indication: Product used for unknown indication
     Dosage: 1.0 DOSAGE FORMS AT AN UNSPECIFIED FREQUENCY
     Route: 065
  220. MYRBETRIQ [Suspect]
     Active Substance: MIRABEGRON
     Dosage: (DOSAGE FORM: TABLET) 1.0 DOSAGE FORMS, 1 EVERY 1 DAYS
     Route: 065
  221. MYRBETRIQ [Suspect]
     Active Substance: MIRABEGRON
     Dosage: (DOSAGE FORM: TABLET) 1.0 DOSAGE FORMS AT AN UNSPECIFIED FREQUENCY
     Route: 065
  222. ORENCIA [Suspect]
     Active Substance: ABATACEPT
     Indication: Rheumatoid arthritis
     Dosage: (DOSAGE FORM: NOT SPECIFIED) UNSPECIFIED DOSE AND FREQUENCY
     Route: 065
  223. ORENCIA [Suspect]
     Active Substance: ABATACEPT
     Dosage: (DOSAGE FORM: NOT SPECIFIED) 750.0 MG AT AN UNSPECIFIED FREQUENCY
     Route: 042
  224. ORENCIA [Suspect]
     Active Substance: ABATACEPT
     Dosage: (DOSAGE FORM: NOT SPECIFIED) UNSPECIFIED DOSE AND FREQUENCY
     Route: 042
  225. ORENCIA [Suspect]
     Active Substance: ABATACEPT
     Dosage: (DOSAGE FORM: NOT SPECIFIED) 160.0 MG AT AN UNSPECIFIED FREQUENCY
     Route: 065
  226. ORENCIA [Suspect]
     Active Substance: ABATACEPT
     Dosage: (DOSAGE FORM: NOT SPECIFIED) UNSPECIFIED DOSE AND FREQUENCY
     Route: 042
  227. ORENCIA [Suspect]
     Active Substance: ABATACEPT
     Dosage: (DOSAGE FORM: NOT SPECIFIED) 750.0 MG AT AN UNSPECIFIED FREQUENCY
     Route: 065
  228. ORENCIA [Suspect]
     Active Substance: ABATACEPT
     Dosage: (DOSAGE FORM: NOT SPECIFIED) UNSPECIFIED DOSE AND FREQUENCY
     Route: 065
  229. ORENCIA [Suspect]
     Active Substance: ABATACEPT
     Dosage: (DOSAGE FORM: NOT SPECIFIED) UNSPECIFIED DOSE AND FREQUENCY
     Route: 042
  230. ORENCIA [Suspect]
     Active Substance: ABATACEPT
     Dosage: (DOSAGE FORM: NOT SPECIFIED) 250.0 MG AT AN UNSPECIFIED FREQUENCY
     Route: 065
  231. ORENCIA [Suspect]
     Active Substance: ABATACEPT
     Dosage: (DOSAGE FORM: NOT SPECIFIED) 125.0 MG, 1 EVERY 1 WEEKS
     Route: 065
  232. ORENCIA [Suspect]
     Active Substance: ABATACEPT
     Dosage: (DOSAGE FORM: NOT SPECIFIED) UNSPECIFIED DOSE AND FREQUENCY
     Route: 058
  233. PHTHALYLSULFATHIAZOLE [Suspect]
     Active Substance: PHTHALYLSULFATHIAZOLE
     Indication: Rheumatoid arthritis
     Dosage: UNSPECIFIED DOSE AND FREQUENCY
     Route: 065
  234. PHTHALYLSULFATHIAZOLE [Suspect]
     Active Substance: PHTHALYLSULFATHIAZOLE
     Dosage: UNSPECIFIED DOSE AND FREQUENCY
     Route: 042
  235. PHTHALYLSULFATHIAZOLE [Suspect]
     Active Substance: PHTHALYLSULFATHIAZOLE
     Dosage: UNSPECIFIED DOSE AND FREQUENCY
     Route: 058
  236. PHTHALYLSULFATHIAZOLE [Suspect]
     Active Substance: PHTHALYLSULFATHIAZOLE
     Dosage: 500.0 MG AT AN UNSPECIFIED FREQUENCY
     Route: 048
  237. PHTHALYLSULFATHIAZOLE [Suspect]
     Active Substance: PHTHALYLSULFATHIAZOLE
     Dosage: UNSPECIFIED DOSE AND FREQUENCY
     Route: 065
  238. PHTHALYLSULFATHIAZOLE [Suspect]
     Active Substance: PHTHALYLSULFATHIAZOLE
     Dosage: 400.0 MG AT AN UNSPECIFIED FREQUENCY
     Route: 065
  239. PHTHALYLSULFATHIAZOLE [Suspect]
     Active Substance: PHTHALYLSULFATHIAZOLE
     Dosage: 2000.0 MG, 1 EVERY 1 DAYS
     Route: 048
  240. PREDNISONE [Suspect]
     Active Substance: PREDNISONE
     Indication: Rheumatoid arthritis
     Dosage: (DOSAGE FORM: NOT SPECIFIED) 5.0 MG AT AN UNSPECIFIED FREQUENCY
     Route: 065
  241. PREDNISONE [Suspect]
     Active Substance: PREDNISONE
     Dosage: 1.0 MG AT AN UNSPECIFIED FREQUENCY
     Route: 048
  242. PREDNISONE [Suspect]
     Active Substance: PREDNISONE
     Dosage: UNSPECIFIED DOSE AND FREQUENCY
     Route: 048
  243. PREDNISONE [Suspect]
     Active Substance: PREDNISONE
     Dosage: 50.0 MG, 1 EVERY 1 DAYS
     Route: 048
  244. PREDNISONE [Suspect]
     Active Substance: PREDNISONE
     Dosage: 5.0 MG AT AN UNSPECIFIED FREQUENCY
     Route: 048
  245. PREDNISONE [Suspect]
     Active Substance: PREDNISONE
     Dosage: 10.0 MG AT AN UNSPECIFIED FREQUENCY
     Route: 065
  246. PREDNISONE [Suspect]
     Active Substance: PREDNISONE
     Dosage: UNSPECIFIED DOSE AND FREQUENCY
     Route: 065
  247. PREDNISONE [Suspect]
     Active Substance: PREDNISONE
     Dosage: 20.0 MG, 1 EVERY 1 DAYS
     Route: 048
  248. PREDNISONE [Suspect]
     Active Substance: PREDNISONE
     Dosage: UNSPECIFIED DOSE AND FREQUENCY
     Route: 065
  249. PREDNISONE [Suspect]
     Active Substance: PREDNISONE
     Dosage: 1.0 MG AT AN UNSPECIFIED FREQUENCY
     Route: 065
  250. PSEUDOEPHEDRINE HYDROCHLORIDE [Suspect]
     Active Substance: PSEUDOEPHEDRINE HYDROCHLORIDE
     Indication: Rheumatoid arthritis
     Dosage: 10.0 MG AT AN UNSPECIFIED FREQUENCY
     Route: 065
  251. PSEUDOEPHEDRINE HYDROCHLORIDE [Suspect]
     Active Substance: PSEUDOEPHEDRINE HYDROCHLORIDE
     Dosage: UNSPECIFIED DOSE AND FREQUENCY
     Route: 065
  252. PSEUDOEPHEDRINE HYDROCHLORIDE [Suspect]
     Active Substance: PSEUDOEPHEDRINE HYDROCHLORIDE
     Dosage: 25.0 MG AT AN UNSPECIFIED FREQUENCY
     Route: 065
  253. PSEUDOEPHEDRINE HYDROCHLORIDE [Suspect]
     Active Substance: PSEUDOEPHEDRINE HYDROCHLORIDE
     Dosage: 1.0 MG AT AN UNSPECIFIED FREQUENCY
     Route: 065
  254. RAMIPRIL [Suspect]
     Active Substance: RAMIPRIL
     Indication: Rheumatoid arthritis
     Dosage: (DOSAGE FORM: NOT SPECIFIED) UNSPECIFIED DOSE AND FREQUENCY
     Route: 016
  255. RAMIPRIL [Suspect]
     Active Substance: RAMIPRIL
     Dosage: (DOSAGE FORM: NOT SPECIFIED) UNSPECIFIED DOSE AND FREQUENCY
     Route: 065
  256. RAMIPRIL [Suspect]
     Active Substance: RAMIPRIL
     Dosage: (DOSAGE FORM: NOT SPECIFIED) UNSPECIFIED DOSE AND FREQUENCY
     Route: 042
  257. CETIRIZINE HYDROCHLORIDE\PSEUDOEPHEDRINE HYDROCHLORIDE [Suspect]
     Active Substance: CETIRIZINE HYDROCHLORIDE\PSEUDOEPHEDRINE HYDROCHLORIDE
     Indication: Rheumatoid arthritis
     Dosage: UNSPECIFIED DOSE AND FREQUENCY
     Route: 042
  258. CETIRIZINE HYDROCHLORIDE\PSEUDOEPHEDRINE HYDROCHLORIDE [Suspect]
     Active Substance: CETIRIZINE HYDROCHLORIDE\PSEUDOEPHEDRINE HYDROCHLORIDE
     Dosage: (DOSAGE FORM: TABLET) 25.0 MG AT AN UNSPECIFIED FREQUENCY
     Route: 065
  259. CETIRIZINE HYDROCHLORIDE\PSEUDOEPHEDRINE HYDROCHLORIDE [Suspect]
     Active Substance: CETIRIZINE HYDROCHLORIDE\PSEUDOEPHEDRINE HYDROCHLORIDE
     Dosage: (DOSAGE FORM: TABLET) 10.0 MG AT AN UNSPECIFIED FREQUENCY
     Route: 065
  260. CETIRIZINE HYDROCHLORIDE\PSEUDOEPHEDRINE HYDROCHLORIDE [Suspect]
     Active Substance: CETIRIZINE HYDROCHLORIDE\PSEUDOEPHEDRINE HYDROCHLORIDE
     Dosage: (DOSAGE FORM: TABLET) 25.0 MG AT AN UNSPECIFIED FREQUENCY
     Route: 065
  261. CETIRIZINE HYDROCHLORIDE\PSEUDOEPHEDRINE HYDROCHLORIDE [Suspect]
     Active Substance: CETIRIZINE HYDROCHLORIDE\PSEUDOEPHEDRINE HYDROCHLORIDE
     Dosage: (DOSAGE FORM: TABLET) UNSPECIFIED DOSE AND FREQUENCY
     Route: 065
  262. REMICADE [Suspect]
     Active Substance: INFLIXIMAB
     Indication: Rheumatoid arthritis
     Dosage: UNSPECIFIED DOSE AND FREQUENCY
     Route: 042
  263. REMICADE [Suspect]
     Active Substance: INFLIXIMAB
     Dosage: 500.0 MG AT AN UNSPECIFIED FREQUENCY
     Route: 042
  264. REMICADE [Suspect]
     Active Substance: INFLIXIMAB
     Dosage: 300.0 MG AT AN UNSPECIFIED FREQUENCY
     Route: 042
  265. REMICADE [Suspect]
     Active Substance: INFLIXIMAB
     Dosage: UNSPECIFIED DOSE AND FREQUENCY
     Route: 058
  266. REMICADE [Suspect]
     Active Substance: INFLIXIMAB
     Dosage: UNSPECIFIED DOSE AND FREQUENCY
     Route: 042
  267. REMICADE [Suspect]
     Active Substance: INFLIXIMAB
     Dosage: UNSPECIFIED DOSE AND FREQUENCY
     Route: 065
  268. REMICADE [Suspect]
     Active Substance: INFLIXIMAB
     Dosage: UNSPECIFIED DOSE AND FREQUENCY
     Route: 058
  269. REMICADE [Suspect]
     Active Substance: INFLIXIMAB
     Dosage: 500.0 MG, 1 EVERY 1 DAYS
     Route: 042
  270. RITUXIMAB [Suspect]
     Active Substance: RITUXIMAB
     Indication: Rheumatoid arthritis
     Dosage: (DOSAGE FORM: NOT SPECIFIED) 2000.0 MG, 1 EVERY 1 DAYS
     Route: 042
  271. RITUXIMAB [Suspect]
     Active Substance: RITUXIMAB
     Dosage: (DOSAGE FORM: NOT SPECIFIED) UNSPECIFIED DOSE AND FREQUENCY
     Route: 016
  272. RITUXIMAB [Suspect]
     Active Substance: RITUXIMAB
     Dosage: (DOSAGE FORM: NOT SPECIFIED) 2000.0 MG, 1 EVERY 1 DAYS
     Route: 065
  273. RITUXIMAB [Suspect]
     Active Substance: RITUXIMAB
     Dosage: (DOSAGE FORM: NOT SPECIFIED) UNSPECIFIED DOSE AND FREQUENCY
     Route: 058
  274. RITUXIMAB [Suspect]
     Active Substance: RITUXIMAB
     Dosage: (DOSAGE FORM: NOT SPECIFIED) UNSPECIFIED DOSE AND FREQUENCY
     Route: 043
  275. RITUXIMAB [Suspect]
     Active Substance: RITUXIMAB
     Dosage: (DOSAGE FORM: NOT SPECIFIED) 365.0 MG AT AN UNSPECIFIED FREQUENCY
     Route: 065
  276. RITUXIMAB [Suspect]
     Active Substance: RITUXIMAB
     Dosage: (DOSAGE FORM: NOT SPECIFIED) UNSPECIFIED DOSE AND FREQUENCY
     Route: 016
  277. RITUXIMAB [Suspect]
     Active Substance: RITUXIMAB
     Dosage: (DOSAGE FORM: NOT SPECIFIED) 2.0 G, 1 EVERY 1 DAYS
     Route: 042
  278. RITUXIMAB [Suspect]
     Active Substance: RITUXIMAB
     Dosage: (DOSAGE FORM: NOT SPECIFIED) UNSPECIFIED DOSE AND FREQUENCY
     Route: 042
  279. RITUXIMAB [Suspect]
     Active Substance: RITUXIMAB
     Dosage: (DOSAGE FORM: NOT SPECIFIED) UNSPECIFIED DOSE AND FREQUENCY
     Route: 016
  280. RITUXIMAB [Suspect]
     Active Substance: RITUXIMAB
     Dosage: (DOSAGE FORM: NOT SPECIFIED) 2000.0 MG, 1 EVERY 1 DAYS
     Route: 042
  281. RITUXIMAB [Suspect]
     Active Substance: RITUXIMAB
     Dosage: (DOSAGE FORM: NOT SPECIFIED) UNSPECIFIED DOSE AND FREQUENCY
     Route: 058
  282. RITUXIMAB [Suspect]
     Active Substance: RITUXIMAB
     Dosage: (DOSAGE FORM: NOT SPECIFIED) UNSPECIFIED DOSE AND FREQUENCY
     Route: 065
  283. RITUXIMAB [Suspect]
     Active Substance: RITUXIMAB
     Dosage: (DOSAGE FORM: NOT SPECIFIED) UNSPECIFIED DOSE AND FREQUENCY
     Route: 043
  284. RITUXIMAB [Suspect]
     Active Substance: RITUXIMAB
     Dosage: (DOSAGE FORM: NOT SPECIFIED) UNSPECIFIED DOSE AND FREQUENCY
     Route: 042
  285. SIMPONI [Suspect]
     Active Substance: GOLIMUMAB
     Indication: Rheumatoid arthritis
     Dosage: (DOSAGE FORM: SOLUTION SUBCUTANEOUS) UNSPECIFIED DOSE AND FREQUENCY
     Route: 058
  286. SIMPONI [Suspect]
     Active Substance: GOLIMUMAB
     Dosage: (DOSAGE FORM: NOT SPECIFIED) 50.0 MG AT AN UNSPECIFIED FREQUENCY
     Route: 065
  287. SIMPONI [Suspect]
     Active Substance: GOLIMUMAB
     Dosage: (DOSAGE FORM: NOT SPECIFIED) UNSPECIFIED DOSE AND FREQUENCY
     Route: 065
  288. SIMPONI [Suspect]
     Active Substance: GOLIMUMAB
     Dosage: (DOSAGE FORM: NOT SPECIFIED) 50.0 MG AT AN UNSPECIFIED FREQUENCY
     Route: 065
  289. SIMPONI [Suspect]
     Active Substance: GOLIMUMAB
     Dosage: (DOSAGE FORM: NOT SPECIFIED) UNSPECIFIED DOSE AND FREQUENCY
     Route: 058
  290. SULFASALAZINE [Suspect]
     Active Substance: SULFASALAZINE
     Indication: Rheumatoid arthritis
     Dosage: (DOSAGE FORM: NOT SPECIFIED) 500.0 MG AT AN UNSPECIFIED FREQUENCY
     Route: 048
  291. SULFASALAZINE [Suspect]
     Active Substance: SULFASALAZINE
     Dosage: (DOSAGE FORM: NOT SPECIFIED) UNSPECIFIED DOSE AND FREQUENCY
     Route: 065
  292. SULFASALAZINE [Suspect]
     Active Substance: SULFASALAZINE
     Dosage: (DOSAGE FORM: NOT SPECIFIED) UNSPECIFIED DOSE AND FREQUENCY
     Route: 058
  293. SULFASALAZINE [Suspect]
     Active Substance: SULFASALAZINE
     Dosage: (DOSAGE FORM: NOT SPECIFIED) 1.0 G, 1 EVERY 1 DAYS
     Route: 065
  294. SULFASALAZINE [Suspect]
     Active Substance: SULFASALAZINE
     Dosage: (DOSAGE FORM: NOT SPECIFIED) UNSPECIFIED DOSE AND FREQUENCY
     Route: 065
  295. SULFASALAZINE [Suspect]
     Active Substance: SULFASALAZINE
     Dosage: (DOSAGE FORM: NOT SPECIFIED) 2.0 G, 1 EVERY 1 DAYS
     Route: 058
  296. SULFASALAZINE [Suspect]
     Active Substance: SULFASALAZINE
     Dosage: (DOSAGE FORM: NOT SPECIFIED) 2.0 DOSAGE FORMS, 1 EVERY 1 DAYS
     Route: 048
  297. SULFASALAZINE [Suspect]
     Active Substance: SULFASALAZINE
     Dosage: (DOSAGE FORM: NOT SPECIFIED) 4.0 MG, 1 EVERY 1 DAYS
     Route: 058
  298. SULFASALAZINE [Suspect]
     Active Substance: SULFASALAZINE
     Dosage: (DOSAGE FORM: NOT SPECIFIED) UNSPECIFIED DOSE AND FREQUENCY
     Route: 048
  299. SULFASALAZINE [Suspect]
     Active Substance: SULFASALAZINE
     Dosage: (DOSAGE FORM: NOT SPECIFIED) 1.0 G, 1 EVERY 1 DAYS
     Route: 065
  300. SULFASALAZINE [Suspect]
     Active Substance: SULFASALAZINE
     Dosage: (DOSAGE FORM: NOT SPECIFIED) 1.0 G AT AN UNSPECIFIED FREQUENCY
     Route: 048
  301. SULFASALAZINE [Suspect]
     Active Substance: SULFASALAZINE
     Dosage: (DOSAGE FORM: NOT SPECIFIED) 1000.0 MG AT AN UNSPECIFIED FREQUENCY
     Route: 058
  302. SULFASALAZINE [Suspect]
     Active Substance: SULFASALAZINE
     Dosage: (DOSAGE FORM: NOT SPECIFIED) UNSPECIFIED DOSE AND FREQUENCY
     Route: 016
  303. SULFASALAZINE [Suspect]
     Active Substance: SULFASALAZINE
     Dosage: (DOSAGE FORM: NOT SPECIFIED) 2.0 G, 1 EVERY 1 DAYS
     Route: 065
  304. SULFASALAZINE [Suspect]
     Active Substance: SULFASALAZINE
     Dosage: (DOSAGE FORM: NOT SPECIFIED) UNSPECIFIED DOSE AND FREQUENCY
     Route: 065
  305. SULFASALAZINE [Suspect]
     Active Substance: SULFASALAZINE
     Dosage: (DOSAGE FORM: NOT SPECIFIED) UNSPECIFIED DOSE AND FREQUENCY
     Route: 048
  306. SULFASALAZINE [Suspect]
     Active Substance: SULFASALAZINE
     Dosage: (DOSAGE FORM: NOT SPECIFIED) 1.0 DOSAGE FORMS AT AN UNSPECIFIED FREQUENCY
     Route: 048
  307. SULFASALAZINE [Suspect]
     Active Substance: SULFASALAZINE
     Dosage: (DOSAGE FORM: NOT SPECIFIED) 100.0 MG AT AN UNSPECIFIED FREQUENCY
     Route: 048
  308. SULFASALAZINE [Suspect]
     Active Substance: SULFASALAZINE
     Dosage: (DOSAGE FORM: NOT SPECIFIED) UNSPECIFIED DOSE AND FREQUENCY
     Route: 065
  309. SULFASALAZINE [Suspect]
     Active Substance: SULFASALAZINE
     Dosage: (DOSAGE FORM: NOT SPECIFIED) 2000.0 MG, 1 EVERY 1 DAYS
     Route: 048
  310. SULFASALAZINE [Suspect]
     Active Substance: SULFASALAZINE
     Dosage: (DOSAGE FORM: NOT SPECIFIED) 500.0 MG AT AN UNSPECIFIED FREQUENCY
     Route: 058
  311. SULFASALAZINE [Suspect]
     Active Substance: SULFASALAZINE
     Dosage: (DOSAGE FORM: NOT SPECIFIED) 300.0 MG, 1 EVERY 1 DAYS
     Route: 065
  312. SULFASALAZINE [Suspect]
     Active Substance: SULFASALAZINE
     Dosage: (DOSAGE FORM: NOT SPECIFIED) 10.0 MG AT AN UNSPECIFIED FREQUENCY
     Route: 058
  313. SULFASALAZINE [Suspect]
     Active Substance: SULFASALAZINE
     Dosage: (DOSAGE FORM: NOT SPECIFIED) 2.0 DOSAGE FORMS, 1 EVERY 1 DAYS
     Route: 048
  314. TOCILIZUMAB [Suspect]
     Active Substance: TOCILIZUMAB
     Indication: Rheumatoid arthritis
     Dosage: (DOSAGE FORM: NOT SPECIFIED) UNSPECIFIED DOSE AND FREQUENCY
     Route: 065
  315. TOCILIZUMAB [Suspect]
     Active Substance: TOCILIZUMAB
     Dosage: (DOSAGE FORM: NOT SPECIFIED) 8.0 MG AT AN UNSPECIFIED FREQUENCY
     Route: 042
  316. TOCILIZUMAB [Suspect]
     Active Substance: TOCILIZUMAB
     Dosage: (DOSAGE FORM: NOT SPECIFIED) 162.0 MG AT AN UNSPECIFIED FREQUENCY
     Route: 058
  317. TOCILIZUMAB [Suspect]
     Active Substance: TOCILIZUMAB
     Dosage: (DOSAGE FORM: NOT SPECIFIED) UNSPECIFIED DOSE AND FREQUENCY
     Route: 058
  318. TOCILIZUMAB [Suspect]
     Active Substance: TOCILIZUMAB
     Dosage: (DOSAGE FORM: NOT SPECIFIED) 8.0 MG AT AN UNSPECIFIED FREQUENCY
     Route: 016
  319. TOCILIZUMAB [Suspect]
     Active Substance: TOCILIZUMAB
     Dosage: (DOSAGE FORM: NOT SPECIFIED) UNSPECIFIED DOSE AND FREQUENCY
     Route: 042
  320. TOCILIZUMAB [Suspect]
     Active Substance: TOCILIZUMAB
     Dosage: (DOSAGE FORM: NOT SPECIFIED) 160.0 MG AT AN UNSPECIFIED FREQUENCY
     Route: 065
  321. TOPIRAMATE [Suspect]
     Active Substance: TOPIRAMATE
     Indication: Migraine
     Dosage: (DOSAGE FORM: NOT SPECIFIED) 25.0 MG AT AN UNSPECIFIED FREQUENCY
     Route: 065
  322. TOPIRAMATE [Suspect]
     Active Substance: TOPIRAMATE
     Dosage: (DOSAGE FORM: NOT SPECIFIED) 3.0 MG, 1 EVERY 1 DAYS
     Route: 065
  323. TOPIRAMATE [Suspect]
     Active Substance: TOPIRAMATE
     Dosage: (DOSAGE FORM: NOT SPECIFIED) 25.0 MG, 1 EVERY 1 DAYS
     Route: 065
  324. USTEKINUMAB [Suspect]
     Active Substance: USTEKINUMAB
     Indication: Product used for unknown indication
     Dosage: (DOSAGE FORM: NOT SPECIFIED) 40.0 MG AT AN UNSPECIFIED FREQUENCY
     Route: 065
  325. USTEKINUMAB [Suspect]
     Active Substance: USTEKINUMAB
     Dosage: (DOSAGE FORM: NOT SPECIFIED) UNSPECIFIED DOSE AND FREQUENCY
     Route: 058
  326. USTEKINUMAB [Suspect]
     Active Substance: USTEKINUMAB
     Dosage: (DOSAGE FORM: NOT SPECIFIED) 40.0 MG AT AN UNSPECIFIED FREQUENCY
     Route: 058
  327. XELJANZ [Suspect]
     Active Substance: TOFACITINIB CITRATE
     Indication: Rheumatoid arthritis
     Dosage: (DOSAGE FORM: NOT SPECIFIED) UNSPECIFIED DOSE AND FREQUENCY
     Route: 065
  328. XELJANZ [Suspect]
     Active Substance: TOFACITINIB CITRATE
     Dosage: 5.0 MG AT AN UNSPECIFIED FREQUENCY
     Route: 065
  329. XELJANZ [Suspect]
     Active Substance: TOFACITINIB CITRATE
     Dosage: 20.0 MG, 1 EVERY 1 DAYS
     Route: 048
  330. XELJANZ [Suspect]
     Active Substance: TOFACITINIB CITRATE
     Dosage: 10.0 MG, 1 EVERY 1 DAYS
     Route: 065
  331. XELJANZ [Suspect]
     Active Substance: TOFACITINIB CITRATE
     Dosage: 5.0 MG AT AN UNSPECIFIED FREQUENCY
     Route: 048
  332. XELJANZ [Suspect]
     Active Substance: TOFACITINIB CITRATE
     Dosage: 10.0 MG, 1 EVERY 1 DAYS
     Route: 048
  333. XELJANZ [Suspect]
     Active Substance: TOFACITINIB CITRATE
     Dosage: UNSPECIFIED DOSE AND FREQUENCY
     Route: 065
  334. XELJANZ [Suspect]
     Active Substance: TOFACITINIB CITRATE
     Dosage: 5.0 MG AT AN UNSPECIFIED FREQUENCY
     Route: 065
  335. TOFACITINIB CITRATE [Suspect]
     Active Substance: TOFACITINIB CITRATE
     Indication: Rheumatoid arthritis
     Dosage: (DOSAGE FORM: NOT SPECIFIED) 10.0 MG, 1 EVERY 1 DAYS
     Route: 048
  336. TOFACITINIB CITRATE [Suspect]
     Active Substance: TOFACITINIB CITRATE
     Dosage: (DOSAGE FORM: NOT SPECIFIED) 10.0 MG, 1 EVERY 1 DAYS
     Route: 065
  337. DICLOFENAC POTASSIUM [Suspect]
     Active Substance: DICLOFENAC POTASSIUM
     Indication: Product used for unknown indication
     Dosage: (DOSAGE FORM: TABLET (ENTERIC-COATED)) UNSPECIFIED DOSE AND FREQUENCY
     Route: 065
  338. TRIAMCINOLONE ACETONIDE [Suspect]
     Active Substance: TRIAMCINOLONE ACETONIDE
     Indication: Rheumatoid arthritis
     Dosage: (DOSAGE FORM: SUSPENSION INTRAARTICULAR) UNSPECIFIED DOSE AND FREQUENCY
     Route: 014
  339. TOFACITINIB [Suspect]
     Active Substance: TOFACITINIB
     Indication: Rheumatoid arthritis
     Dosage: 10.0 MG, 1 EVERY 1 DAYS
     Route: 065
  340. TOFACITINIB [Suspect]
     Active Substance: TOFACITINIB
     Dosage: UNSPECIFIED DOSE AND FREQUENCY
     Route: 065
  341. TETRACYCLINE HYDROCHLORIDE [Suspect]
     Active Substance: TETRACYCLINE HYDROCHLORIDE
     Indication: Rheumatoid arthritis
     Dosage: (DOSAGE FORM: NOT SPECIFIED) UNSPECIFIED DOSE AND FREQUENCY
     Route: 065
  342. GOLD SODIUM THIOMALATE [Suspect]
     Active Substance: GOLD SODIUM THIOMALATE
     Indication: Product used for unknown indication
     Dosage: (DOSAGE FORM: NOT SPECIFIED) UNSPECIFIED DOSE AND FREQUENCY
     Route: 048
  343. GOLD SODIUM THIOMALATE [Suspect]
     Active Substance: GOLD SODIUM THIOMALATE
     Dosage: (DOSAGE FORM: NOT SPECIFIED) UNSPECIFIED DOSE AND FREQUENCY
     Route: 065
  344. AIMOVIG [Suspect]
     Active Substance: ERENUMAB-AOOE
     Indication: Migraine
     Dosage: UNSPECIFIED DOSE AND FREQUENCY
     Route: 065
  345. AZATHIOPRINE SODIUM [Suspect]
     Active Substance: AZATHIOPRINE SODIUM
     Indication: Product used for unknown indication
     Dosage: (DOSAGE FORM: NOT SPECIFIED) UNSPECIFIED DOSE AND FREQUENCY
     Route: 065
  346. BERINERT [Suspect]
     Active Substance: HUMAN C1-ESTERASE INHIBITOR
     Indication: Product used for unknown indication
     Dosage: (DOSAGE FORM: NOT SPECIFIED) UNSPECIFIED DOSE AND FREQUENCY
     Route: 065
  347. CALCIUM CARBONATE [Suspect]
     Active Substance: CALCIUM CARBONATE
     Indication: Product used for unknown indication
     Dosage: (DOSAGE FORM: NOT SPECIFIED) UNSPECIFIED DOSE AND FREQUENCY
     Route: 065
  348. CHOLECALCIFEROL [Suspect]
     Active Substance: CHOLECALCIFEROL
     Indication: Product used for unknown indication
     Dosage: (DOSAGE FORM: NOT SPECIFIED) UNSPECIFIED DOSE AND FREQUENCY
     Route: 065
  349. DICLOFENAC DIETHYLAMINE [Suspect]
     Active Substance: DICLOFENAC DIETHYLAMINE
     Indication: Product used for unknown indication
     Dosage: (DOSAGE FORM: NOT SPECIFIED) UNSPECIFIED DOSE AND FREQUENCY
     Route: 065
  350. DOMPERIDONE MALEATE [Suspect]
     Active Substance: DOMPERIDONE MALEATE
     Indication: Product used for unknown indication
     Dosage: (DOSAGE FORM: NOT SPECIFIED) UNSPECIFIED DOSE AND FREQUENCY
     Route: 065
  351. FLUMETHASONE [Suspect]
     Active Substance: FLUMETHASONE
     Indication: Product used for unknown indication
     Dosage: (DOSAGE FORM: NOT SPECIFIED) UNSPECIFIED DOSE AND FREQUENCY
     Route: 065
  352. GOLD [Suspect]
     Active Substance: GOLD
     Indication: Product used for unknown indication
     Dosage: (DOSAGE FORM: NOT SPECIFIED) UNSPECIFIED DOSE AND FREQUENCY
     Route: 065
  353. GOLD SODIUM THIOMALATE [Suspect]
     Active Substance: GOLD SODIUM THIOMALATE
     Indication: Product used for unknown indication
     Dosage: (DOSAGE FORM: NOT SPECIFIED) UNSPECIFIED DOSE AND FREQUENCY
     Route: 065
  354. HYDROCORTISONE [Suspect]
     Active Substance: HYDROCORTISONE
     Indication: Product used for unknown indication
     Dosage: (DOSAGE FORM: NOT SPECIFIED) UNSPECIFIED DOSE AND FREQUENCY
     Route: 065
  355. METFORMIN HYDROCHLORIDE [Suspect]
     Active Substance: METFORMIN HYDROCHLORIDE
     Indication: Product used for unknown indication
     Dosage: (DOSAGE FORM: NOT SPECIFIED) UNSPECIFIED DOSE AND FREQUENCY
     Route: 042
  356. METHYLPREDNISOLONE [Suspect]
     Active Substance: METHYLPREDNISOLONE
     Indication: Product used for unknown indication
     Dosage: (DOSAGE FORM: NOT SPECIFIED) 80.0 MG AT AN UNSPECIFIED FREQUENCY
     Route: 065
  357. METHYLPREDNISOLONE SODIUM SUCCINATE [Suspect]
     Active Substance: METHYLPREDNISOLONE SODIUM SUCCINATE
     Indication: Product used for unknown indication
     Dosage: (DOSAGE FORM: NOT SPECIFIED) UNSPECIFIED DOSE AND FREQUENCY
     Route: 065
  358. MINOCYCLINE [Suspect]
     Active Substance: MINOCYCLINE HYDROCHLORIDE
     Indication: Product used for unknown indication
     Dosage: (DOSAGE FORM: NOT SPECIFIED) UNSPECIFIED DOSE AND FREQUENCY
     Route: 065
  359. MINOCYCLINE HYDROCHLORIDE [Suspect]
     Active Substance: MINOCYCLINE HYDROCHLORIDE
     Indication: Product used for unknown indication
     Dosage: (DOSAGE FORM: NOT SPECIFIED) UNSPECIFIED DOSE AND FREQUENCY
     Route: 065
  360. MYOCHRYSINE [Suspect]
     Active Substance: GOLD SODIUM THIOMALATE
     Indication: Rheumatoid arthritis
     Dosage: (DOSAGE FORM: SOLUTION INTRAMUSCULAR) UNSPECIFIED DOSE AND FREQUENCY
     Route: 030
  361. NAPROXEN [Suspect]
     Active Substance: NAPROXEN
     Indication: Product used for unknown indication
     Dosage: (DOSAGE FORM: TABLET (ENTERIC-COATED)) UNSPECIFIED DOSE AND FREQUENCY
     Route: 065
  362. NAPROXEN SODIUM [Suspect]
     Active Substance: NAPROXEN SODIUM
     Indication: Rheumatoid arthritis
     Dosage: (DOSAGE FORM: NOT SPECIFIED) 500.0 MG AT AN UNSPECIFIED FREQUENCY
     Route: 065
  363. NUCALA [Suspect]
     Active Substance: MEPOLIZUMAB
     Indication: Product used for unknown indication
     Dosage: (DOSAGE FORM: NOT SPECIFIED) UNSPECIFIED DOSE AND FREQUENCY
     Route: 065
  364. OXYCODONE [Suspect]
     Active Substance: OXYCODONE
     Indication: Product used for unknown indication
     Dosage: (DOSAGE FORM: NOT SPECIFIED) UNSPECIFIED DOSE AND FREQUENCY
     Route: 065
  365. OXYCODONE TEREPHTHALATE [Suspect]
     Active Substance: OXYCODONE TEREPHTHALATE
     Indication: Product used for unknown indication
     Dosage: (DOSAGE FORM: NOT SPECIFIED) UNSPECIFIED DOSE AND FREQUENCY
     Route: 065
  366. PHENYLEPHRINE HYDROCHLORIDE [Suspect]
     Active Substance: PHENYLEPHRINE HYDROCHLORIDE
     Indication: Rheumatoid arthritis
     Dosage: (DOSAGE FORM: NOT SPECIFIED) 10.0 MG AT AN UNSPECIFIED FREQUENCY
     Route: 065
  367. RANITIDINE [Suspect]
     Active Substance: RANITIDINE
     Indication: Product used for unknown indication
     Dosage: (DOSAGE FORM: NOT SPECIFIED) UNSPECIFIED DOSE AND FREQUENCY
     Route: 065
  368. SULFASALAZINE [Suspect]
     Active Substance: SULFASALAZINE
     Indication: Rheumatoid arthritis
     Dosage: (DOSAGE FORM: NOT SPECIFIED) UNSPECIFIED DOSE AND FREQUENCY
     Route: 065
  369. STELARA [Suspect]
     Active Substance: USTEKINUMAB
     Indication: Rheumatoid arthritis
     Dosage: 40.0 MG AT AN UNSPECIFIED FREQUENCY
     Route: 065
  370. STELARA [Suspect]
     Active Substance: USTEKINUMAB
     Dosage: (DOSAGE FORM: SOLUTION SUBCUTANEOUS) UNSPECIFIED DOSE AND FREQUENCY
     Route: 058
  371. TRAMADOL HYDROCHLORIDE [Suspect]
     Active Substance: TRAMADOL HYDROCHLORIDE
     Indication: Product used for unknown indication
     Dosage: (DOSAGE FORM: NOT SPECIFIED) UNSPECIFIED DOSE AND FREQUENCY
     Route: 065
  372. VITAMIN C [Suspect]
     Active Substance: ASCORBIC ACID
     Indication: Product used for unknown indication
     Dosage: (DOSAGE FORM: NOT SPECIFIED) UNSPECIFIED DOSE AND FREQUENCY
     Route: 065

REACTIONS (16)
  - Back injury [Fatal]
  - Gait inability [Fatal]
  - Intentional product use issue [Fatal]
  - Obesity [Fatal]
  - Off label use [Fatal]
  - Osteoarthritis [Fatal]
  - Paraesthesia [Fatal]
  - Peripheral swelling [Fatal]
  - Peripheral venous disease [Fatal]
  - Product quality issue [Fatal]
  - Stomatitis [Fatal]
  - Taste disorder [Fatal]
  - Urticaria [Fatal]
  - Weight increased [Fatal]
  - Wheezing [Fatal]
  - Wound infection [Fatal]
